FAERS Safety Report 6188495-7 (Version None)
Quarter: 2009Q2

REPORT INFORMATION
  Report Type: 
  Country: None (occurrence: None)
  Receive Date: 20090513
  Receipt Date: 20090501
  Transmission Date: 20091009
  Serious: Yes (Other)
  Sender: FDA-Public Use
  Company Number: CA-PFIZER INC-2009206701

PATIENT
  Age: 63 Year

DRUGS (15)
  1. DILANTIN [Suspect]
     Dosage: 100 MG, 3X/DAY
     Dates: start: 20000101
  2. FUROSEMIDE [Suspect]
     Dosage: 160 MG, 2X/DAY (MORNING AND NIGHT)
  3. FUROSEMIDE [Suspect]
     Dosage: 240 MG, 1X/DAY
  4. FUROSEMIDE [Suspect]
     Dosage: 160 MG, 1X/DAY AT NIGHT
  5. SYNTHROID [Concomitant]
     Dosage: UNK
  6. ALENDRONATE SODIUM [Concomitant]
     Dosage: UNK
  7. CLOBAZAM [Concomitant]
     Dosage: 5 MG, 2X/DAY (AM AND PM)
  8. RISPERIDONE [Concomitant]
     Dosage: 1 MG, 1X/DAY AT BEDTIME
  9. PANTOLOC ^BYK MADAUS^ [Concomitant]
     Dosage: 40 UNK, UNK
  10. MONOCOR [Concomitant]
     Dosage: 2.5 MG, UNK
  11. CALCITE D [Concomitant]
     Dosage: 400 MG, 2X/DAY
  12. ALDACTONE [Concomitant]
     Dosage: 50 MG, 1X/DAY
  13. CARDURA [Concomitant]
     Dosage: 20 MG, 1X/DAY
  14. VITAMIN B-12 [Concomitant]
     Dosage: UNK
  15. WARFARIN SODIUM [Concomitant]
     Dosage: UNK

REACTIONS (2)
  - DRUG INTERACTION [None]
  - EPILEPSY [None]
